FAERS Safety Report 6096182-9 (Version None)
Quarter: 2009Q1

REPORT INFORMATION
  Report Type: 
  Country: None (occurrence: None)
  Receive Date: 20090227
  Receipt Date: 20081013
  Transmission Date: 20090719
  Serious: Yes (Other)
  Sender: FDA-Public Use
  Company Number: A0749225A

PATIENT
  Age: 24 Year
  Sex: Female
  Weight: 58.6 kg

DRUGS (2)
  1. LAMICTAL [Suspect]
     Dosage: 100MG TWICE PER DAY
     Route: 048
  2. KEPPRA [Concomitant]

REACTIONS (2)
  - CONVULSION [None]
  - DRUG INEFFECTIVE [None]
